FAERS Safety Report 4509654-2 (Version None)
Quarter: 2004Q4

REPORT INFORMATION
  Report Type: 
  Country: None (occurrence: None)
  Receive Date: 20041124
  Receipt Date: 20041118
  Transmission Date: 20050328
  Serious: Yes (Hospitalization)
  Sender: FDA-Public Use
  Company Number: 200418958US

PATIENT
  Sex: Male

DRUGS (3)
  1. LANTUS [Suspect]
     Indication: DIABETES MELLITUS INSULIN-DEPENDENT
     Dosage: DOSE UNIT: UNITS
     Dates: start: 20041001, end: 20041114
  2. NOVOLOG [Concomitant]
     Dosage: DOSE: NOT PROVIDED
  3. PRILOSEC [Concomitant]
     Dosage: DOSE: NOT PROVIDED

REACTIONS (1)
  - INJECTION SITE ABSCESS [None]
